FAERS Safety Report 24401102 (Version 1)
Quarter: 2024Q4

REPORT INFORMATION
  Report Type: Spontaneous
  Country: US (occurrence: US)
  Receive Date: 20241006
  Receipt Date: 20241006
  Transmission Date: 20250115
  Serious: Yes (Hospitalization, Other)
  Sender: STRIDES
  Company Number: US-STRIDES ARCOLAB LIMITED-2024SP012767

PATIENT
  Age: 66 Year
  Sex: Male

DRUGS (1)
  1. PROPAFENONE [Suspect]
     Active Substance: PROPAFENONE
     Indication: Atrial fibrillation
     Dosage: 1800 MILLIGRAM, TOTAL (THE PATIENT SELF-MEDICATED TREATMENT WITH PROPAFENONE PILLS WITH TOTAL DOSE O
     Route: 065

REACTIONS (12)
  - Gait disturbance [Recovered/Resolved]
  - Intentional product misuse [Unknown]
  - Self-medication [Unknown]
  - Toxicity to various agents [Recovered/Resolved]
  - Hypotension [Recovered/Resolved]
  - Sinus bradycardia [Recovered/Resolved]
  - Atrioventricular block first degree [Recovered/Resolved]
  - Electrocardiogram QRS complex prolonged [Recovered/Resolved]
  - Dizziness [Recovered/Resolved]
  - Atrial fibrillation [Unknown]
  - Therapy non-responder [Unknown]
  - Intentional overdose [Unknown]
